FAERS Safety Report 7885220-6 (Version None)
Quarter: 2011Q4

REPORT INFORMATION
  Report Type: 
  Country: None (occurrence: None)
  Receive Date: 20111102
  Receipt Date: 20111024
  Transmission Date: 20120403
  Serious: Yes (Hospitalization)
  Sender: FDA-Public Use
  Company Number: PHHO2011IT17922

PATIENT
  Sex: Female
  Weight: 70 kg

DRUGS (4)
  1. FTY [Suspect]
     Indication: RELAPSING-REMITTING MULTIPLE SCLEROSIS
     Dosage: 0.5 MG, QD
     Route: 048
     Dates: start: 20111012, end: 20111022
  2. CLARITHROMYCIN [Suspect]
     Indication: NASOPHARYNGITIS
  3. TEGRETOL [Concomitant]
     Indication: EPILEPSY
     Dosage: 400 MG, BID
     Route: 048
     Dates: start: 20010101
  4. DEPAKENE [Concomitant]
     Indication: EPILEPSY
     Dosage: 500 MG, BID
     Route: 048
     Dates: start: 20010101

REACTIONS (2)
  - HEPATIC ENZYME INCREASED [None]
  - EPILEPSY [None]
